FAERS Safety Report 16678078 (Version 4)
Quarter: 2020Q2

REPORT INFORMATION
  Report Type: Spontaneous
  Country: US (occurrence: US)
  Receive Date: 20190807
  Receipt Date: 20200401
  Transmission Date: 20200713
  Serious: Yes (Other)
  Sender: FDA-Public Use
  Company Number: US-PFIZER INC-2019317614

PATIENT
  Age: 59 Year
  Sex: Female
  Weight: 136 kg

DRUGS (15)
  1. VALSARTAN. [Concomitant]
     Active Substance: VALSARTAN
     Indication: BLOOD PRESSURE ABNORMAL
     Dosage: 160 MG, DAILY
     Dates: start: 201907
  2. XARELTO [Concomitant]
     Active Substance: RIVAROXABAN
     Indication: ANTICOAGULANT THERAPY
     Dosage: 20 MG, ONCE DAILY
  3. PANTOPRAZOLE [Concomitant]
     Active Substance: PANTOPRAZOLE
     Indication: GASTROOESOPHAGEAL REFLUX DISEASE
     Dosage: 40 MG, ONCE DAILY
  4. SIMVASTATIN. [Concomitant]
     Active Substance: SIMVASTATIN
     Indication: BLOOD CHOLESTEROL ABNORMAL
     Dosage: 40 MG, ONCE DAILY
  5. SYNTHROID [Concomitant]
     Active Substance: LEVOTHYROXINE SODIUM
     Indication: THYROID DISORDER
     Dosage: 0.05 MG, ONCE DAILY (EARLY IN THE MORNING)
  6. SYMBICORT [Concomitant]
     Active Substance: BUDESONIDE\FORMOTEROL FUMARATE DIHYDRATE
     Indication: ASTHMA LATE ONSET
     Dosage: ONE PUFF, TWICE DAILY (IN THE MORNING AND AT NIGHT)
  7. SERTRALINE [Concomitant]
     Active Substance: SERTRALINE HYDROCHLORIDE
     Dosage: 100 MG, ONCE DAILY
  8. TIKOSYN [Suspect]
     Active Substance: DOFETILIDE
     Dosage: 500 UG, TWICE DAILY (AT 8 AM AND AT 8PM)
  9. METOPROLOL SUCCINATE. [Concomitant]
     Active Substance: METOPROLOL SUCCINATE
     Indication: CARDIAC DISORDER
     Dosage: 60 MG, TWICE DAILY
  10. SINGULAIR [Concomitant]
     Active Substance: MONTELUKAST SODIUM
     Indication: ASTHMA LATE ONSET
     Dosage: 10 MG, ONCE DAILY (NIGHTLY)
  11. POTASSIUM CHLORIDE. [Concomitant]
     Active Substance: POTASSIUM CHLORIDE
     Indication: BLOOD POTASSIUM DECREASED
     Dosage: 10 MEQ, TWICE DAILY
  12. METFORMIN [Concomitant]
     Active Substance: METFORMIN HYDROCHLORIDE
     Indication: DIABETES MELLITUS
     Dosage: 1000 MG, TWICE DAILY
  13. TIKOSYN [Suspect]
     Active Substance: DOFETILIDE
     Indication: ARRHYTHMIA
     Dosage: 500 UG, TWICE DAILY (AT 8 AM AND AT 8PM)
  14. VIT D [Concomitant]
     Active Substance: VITAMIN D NOS
     Indication: VITAMIN D DECREASED
     Dosage: 50000 IU, WEEKLY
     Route: 048
  15. GLIPIZIDE. [Concomitant]
     Active Substance: GLIPIZIDE
     Indication: DIABETES MELLITUS
     Dosage: 10 MG, TWICE DAILY

REACTIONS (4)
  - Gait disturbance [Unknown]
  - Panic reaction [Unknown]
  - Arrhythmia [Recovering/Resolving]
  - Stress [Unknown]

NARRATIVE: CASE EVENT DATE: 200909
